FAERS Safety Report 9729840 (Version 2)
Quarter: 2014Q1

REPORT INFORMATION
  Report Type: Spontaneous
  Country: RU (occurrence: RU)
  Receive Date: 20131204
  Receipt Date: 20140103
  Transmission Date: 20141002
  Serious: Yes (Life-Threatening, Other)
  Sender: FDA-Public Use
  Company Number: RU-SHIRE-ALL1-2013-08309

PATIENT
  Age: 3 Year
  Sex: Male
  Weight: 18.5 kg

DRUGS (6)
  1. ELAPRASE [Suspect]
     Indication: MUCOPOLYSACCHARIDOSIS II
     Dosage: 12 MG, 1X/WEEK (0.5MG/KG)
     Route: 041
     Dates: start: 20131024
  2. PREDNISOLONE [Concomitant]
     Indication: PREMEDICATION
     Dosage: 1 MG/KG, 1X/DAY:QD
     Route: 065
     Dates: start: 20131107
  3. PREDNISOLONE [Concomitant]
     Dosage: 1 MG/KG, UNKNOWN
     Route: 042
     Dates: start: 201311
  4. CHLOROPYRAMINE [Concomitant]
     Indication: PRODUCT USED FOR UNKNOWN INDICATION
     Dosage: 0.4 MG, 1X/DAY:QD
     Route: 048
     Dates: start: 20131107
  5. CHLOROPYRAMINE [Concomitant]
     Dosage: UNK UNK, UNKNOWN
     Route: 042
     Dates: start: 201311
  6. CAPTOPRIL [Concomitant]
     Indication: PRODUCT USED FOR UNKNOWN INDICATION
     Dosage: UNK UNK, UNKNOWN
     Route: 065
     Dates: start: 20131107

REACTIONS (7)
  - Swelling face [Recovered/Resolved]
  - Urticaria [Recovered/Resolved]
  - Hyperthermia [Unknown]
  - Hypersensitivity [Not Recovered/Not Resolved]
  - Diarrhoea [Not Recovered/Not Resolved]
  - Hypertension [Not Recovered/Not Resolved]
  - Infusion related reaction [Not Recovered/Not Resolved]
